FAERS Safety Report 4479491-6 (Version None)
Quarter: 2004Q4

REPORT INFORMATION
  Report Type: 
  Country: None (occurrence: None)
  Receive Date: 20041015
  Receipt Date: 20041005
  Transmission Date: 20050328
  Serious: Yes (Hospitalization, Other)
  Sender: FDA-Public Use
  Company Number: 2004IM000806

PATIENT
  Age: 68 Year
  Sex: Female

DRUGS (3)
  1. INFERGEN [Suspect]
     Indication: HEPATITIS C
     Dosage: 12 MU; QOD; SUBCUTANEOUS
     Route: 058
     Dates: start: 20040416, end: 20040805
  2. URSO [Suspect]
     Indication: HEPATITIS C
     Dosage: 200 MG;TID;ORAL
     Route: 048
     Dates: start: 20040416, end: 20040807
  3. SOLON [Suspect]
     Indication: GASTRITIS
     Dosage: 100 MG;TID;ORAL
     Route: 048
     Dates: start: 20040416, end: 20040807

REACTIONS (6)
  - ALANINE AMINOTRANSFERASE INCREASED [None]
  - ASPARTATE AMINOTRANSFERASE INCREASED [None]
  - BILIRUBINURIA [None]
  - BLOOD BILIRUBIN INCREASED [None]
  - HEPATIC FUNCTION ABNORMAL [None]
  - RASH [None]
